FAERS Safety Report 14654992 (Version 2)
Quarter: 2018Q2

REPORT INFORMATION
  Report Type: Spontaneous
  Country: PT (occurrence: PT)
  Receive Date: 20180319
  Receipt Date: 20180613
  Transmission Date: 20180711
  Serious: Yes (Death)
  Sender: FDA-Public Use
  Company Number: PT-MYLANLABS-2018M1016192

PATIENT
  Age: 67 Year
  Sex: Female

DRUGS (3)
  1. ANASTROZOLE. [Suspect]
     Active Substance: ANASTROZOLE
     Indication: INVASIVE DUCTAL BREAST CARCINOMA
     Dosage: 1 MG, QD
     Route: 048
  2. ACITRETIN. [Concomitant]
     Active Substance: ACITRETIN
     Indication: DERMATITIS
     Dosage: 20 MG, QD
  3. CAPECITABINE. [Concomitant]
     Active Substance: CAPECITABINE
     Indication: CHEMOTHERAPY
     Dosage: UNK

REACTIONS (2)
  - Metastases to pleura [Fatal]
  - Metastases to lymph nodes [Fatal]
